FAERS Safety Report 7627823-X (Version None)
Quarter: 2011Q3

REPORT INFORMATION
  Report Type: 
  Country: None (occurrence: None)
  Receive Date: 20110721
  Receipt Date: 20110719
  Transmission Date: 20111222
  Serious: Yes (Hospitalization)
  Sender: FDA-Public Use
  Company Number: US-GILEAD-2011-0041436

PATIENT
  Sex: Female

DRUGS (12)
  1. CYMBALTA [Concomitant]
  2. KLOR-CON [Concomitant]
  3. TADALAFIL [Concomitant]
  4. SPIRIVA [Concomitant]
  5. ALBUTEROL SULFATE AND IPRATROPIUM BROMIDE [Concomitant]
  6. FERROUS SULFATE TAB [Concomitant]
  7. LETAIRIS [Suspect]
     Indication: PULMONARY HYPERTENSION
     Route: 048
     Dates: start: 20091001
  8. ADVAIR DISKUS 100/50 [Concomitant]
  9. METFORMIN HCL [Concomitant]
  10. OMEPRAZOLE [Concomitant]
  11. NIFEDIPINE [Concomitant]
  12. SPIRONOLACTONE [Concomitant]

REACTIONS (1)
  - PNEUMONIA [None]
